FAERS Safety Report 20772833 (Version 1)
Quarter: 2022Q2

REPORT INFORMATION
  Report Type: Spontaneous
  Country: US (occurrence: US)
  Receive Date: 20220502
  Receipt Date: 20220502
  Transmission Date: 20220721
  Serious: Yes (Life-Threatening, Hospitalization, Other)
  Sender: FDA-Public Use
  Company Number: US-APOTEX-2022AP006581

PATIENT
  Age: 12 Year
  Sex: Female

DRUGS (3)
  1. MIDODRINE [Suspect]
     Active Substance: MIDODRINE
     Indication: Postural orthostatic tachycardia syndrome
     Dosage: 10 MILLIGRAM, TID
     Route: 065
  2. MIDODRINE [Suspect]
     Active Substance: MIDODRINE
     Dosage: 100 MILLIGRAM, QD
     Route: 065
  3. MIDODRINE [Suspect]
     Active Substance: MIDODRINE
     Dosage: UNK
     Route: 065

REACTIONS (8)
  - Intentional overdose [Unknown]
  - Hypertensive emergency [Recovered/Resolved]
  - Generalised tonic-clonic seizure [Recovered/Resolved]
  - Suicide attempt [Unknown]
  - Exposure via ingestion [Unknown]
  - Gaze palsy [Unknown]
  - Nausea [Unknown]
  - Headache [Unknown]
